FAERS Safety Report 19605505 (Version 3)
Quarter: 2021Q3

REPORT INFORMATION
  Report Type: Report from Study
  Country: US (occurrence: US)
  Receive Date: 20210723
  Receipt Date: 20210823
  Transmission Date: 20211014
  Serious: Yes (Other)
  Sender: FDA-Public Use
  Company Number: US-BAUSCH-BL-2021-024956

PATIENT
  Age: 38 Year
  Sex: Male

DRUGS (1)
  1. RELISTOR [Suspect]
     Active Substance: METHYLNALTREXONE BROMIDE
     Indication: CONSTIPATION
     Dosage: HAD ONE
     Route: 065

REACTIONS (6)
  - Epilepsy [Unknown]
  - Rib fracture [Unknown]
  - Feeling abnormal [Unknown]
  - Near death experience [Recovered/Resolved]
  - Cardiac arrest [Unknown]
  - Vomiting [Unknown]

NARRATIVE: CASE EVENT DATE: 20210710
